FAERS Safety Report 5194678-5 (Version None)
Quarter: 2006Q4

REPORT INFORMATION
  Report Type: 
  Country: None (occurrence: None)
  Receive Date: 20061229
  Receipt Date: 20061209
  Transmission Date: 20070319
  Serious: Yes (Other)
  Sender: FDA-Public Use
  Company Number: PHBS2006BR19276

PATIENT
  Age: 34 Year
  Sex: Female
  Weight: 58 kg

DRUGS (1)
  1. CODATEN [Suspect]
     Indication: OSTEOARTHRITIS
     Dosage: 1 DF, ONCE/SINGLE
     Route: 048
     Dates: start: 20061209, end: 20061209

REACTIONS (11)
  - ABDOMINAL PAIN UPPER [None]
  - DIARRHOEA [None]
  - DIZZINESS [None]
  - DRY MOUTH [None]
  - HYPERHIDROSIS [None]
  - HYPOTENSION [None]
  - MALAISE [None]
  - NAUSEA [None]
  - PERIPHERAL COLDNESS [None]
  - RASH [None]
  - TREMOR [None]
